FAERS Safety Report 22602460 (Version 1)
Quarter: 2023Q2

REPORT INFORMATION
  Report Type: Report from Study
  Country: US (occurrence: US)
  Receive Date: 20230614
  Receipt Date: 20230614
  Transmission Date: 20230721
  Serious: Yes (Hospitalization, Other)
  Sender: FDA-Public Use
  Company Number: US-ABBVIE-5289188

PATIENT
  Age: 57 Year
  Sex: Female

DRUGS (1)
  1. RINVOQ [Suspect]
     Active Substance: UPADACITINIB
     Indication: Rheumatoid arthritis
     Route: 048
     Dates: start: 20200615

REACTIONS (7)
  - Medical device implantation [Recovered/Resolved]
  - Hip fracture [Recovered/Resolved]
  - Osteoarthritis [Not Recovered/Not Resolved]
  - Femur fracture [Recovered/Resolved]
  - Fractured coccyx [Recovered/Resolved]
  - Shoulder fracture [Recovered/Resolved]
  - Fall [Unknown]

NARRATIVE: CASE EVENT DATE: 20200615
